FAERS Safety Report 12719520 (Version 3)
Quarter: 2016Q3

REPORT INFORMATION
  Report Type: Spontaneous
  Country: DE (occurrence: DE)
  Receive Date: 20160907
  Receipt Date: 20160916
  Transmission Date: 20161109
  Serious: Yes (Other)
  Sender: FDA-Public Use
  Company Number: DE-BRISTOL-MYERS SQUIBB COMPANY-BMS-2016-072291

PATIENT
  Age: 58 Year
  Sex: Female

DRUGS (5)
  1. HYDROXYTRYPTOPHAN 5 HTP [Concomitant]
     Indication: DEPRESSION
     Dosage: UNK DF, UNK
     Route: 065
  2. ABILIFY [Suspect]
     Active Substance: ARIPIPRAZOLE
     Indication: DEPRESSION
     Dosage: 10 MG, QD
     Route: 048
  3. ABILIFY [Suspect]
     Active Substance: ARIPIPRAZOLE
     Indication: PSYCHOTIC DISORDER
     Dosage: 10 MG, QD
     Route: 048
  4. HYPERICUM PERFORATUM [Suspect]
     Active Substance: HYPERICUM PERFORATUM
     Indication: DEPRESSION
     Dosage: 1 DF, UNK
     Route: 065
  5. ABILIFY [Suspect]
     Active Substance: ARIPIPRAZOLE
     Indication: SCHIZOPHRENIFORM DISORDER
     Dosage: 15 MG, UNK
     Route: 048

REACTIONS (3)
  - Psychotic disorder [Unknown]
  - Depression [Unknown]
  - Drug interaction [Unknown]
